FAERS Safety Report 9237373 (Version 1)
Quarter: 2013Q2

REPORT INFORMATION
  Report Type: Spontaneous
  Country: JP (occurrence: JP)
  Receive Date: 20130417
  Receipt Date: 20130417
  Transmission Date: 20140414
  Serious: Yes (Hospitalization)
  Sender: FDA-Public Use
  Company Number: JP-BAXTER-2013BAX014568

PATIENT
  Age: 48 Year
  Sex: Female

DRUGS (2)
  1. CYCLOPHOSPHAMIDE FOR INJECTION, USP [Suspect]
     Indication: BREAST CANCER
     Route: 065
     Dates: start: 20130109, end: 20130313
  2. FARMORUBICIN [Suspect]
     Indication: BREAST CANCER
     Route: 065
     Dates: start: 20130109, end: 20130313

REACTIONS (2)
  - Pain [Recovering/Resolving]
  - Device leakage [Unknown]
